FAERS Safety Report 25529573 (Version 1)
Quarter: 2025Q3

REPORT INFORMATION
  Report Type: Spontaneous
  Country: US (occurrence: None)
  Receive Date: 20250708
  Receipt Date: 20250708
  Transmission Date: 20251021
  Serious: Yes (Hospitalization)
  Sender: FDA-CTU
  Company Number: None

PATIENT
  Age: 61 Year
  Sex: Male
  Weight: 83.9 kg

DRUGS (1)
  1. XELODA [Suspect]
     Active Substance: CAPECITABINE
     Dates: end: 20250618

REACTIONS (7)
  - Erythema [None]
  - Swelling [None]
  - Pain [None]
  - Nausea [None]
  - Vomiting [None]
  - Tenderness [None]
  - Staphylococcus test positive [None]

NARRATIVE: CASE EVENT DATE: 20250704
